FAERS Safety Report 7288896-X (Version None)
Quarter: 2011Q1

REPORT INFORMATION
  Report Type: 
  Country: None (occurrence: None)
  Receive Date: 20110211
  Receipt Date: 20110131
  Transmission Date: 20110831
  Serious: Yes (Hospitalization)
  Sender: FDA-Public Use
  Company Number: US-PFIZER INC-2010179884

PATIENT
  Age: 66 Year
  Sex: Female
  Weight: 61.25 kg

DRUGS (9)
  1. TORISEL [Suspect]
     Indication: ENDOMETRIAL CANCER
     Dosage: 25 MG, OVER 30 MINUTES WEEKLY EVERY 6 WEEKS
     Route: 042
     Dates: start: 20101111, end: 20101209
  2. AMLODIPINE BESILATE [Suspect]
  3. ACETYLSALICYLIC ACID [Concomitant]
  4. LEXAPRO [Concomitant]
  5. MAGNESIUM [Concomitant]
     Dosage: UNK
  6. SIMVASTATIN [Concomitant]
  7. CALCIUM WITH VITAMIN D [Concomitant]
  8. NORVASC [Concomitant]
  9. SLOW-MAG [Concomitant]

REACTIONS (5)
  - HYPOMAGNESAEMIA [None]
  - VOMITING [None]
  - CONFUSIONAL STATE [None]
  - HYPOCALCAEMIA [None]
  - NAUSEA [None]
